FAERS Safety Report 8264862-2 (Version None)
Quarter: 2012Q2

REPORT INFORMATION
  Report Type: 
  Country: None (occurrence: None)
  Receive Date: 20120406
  Receipt Date: 20120326
  Transmission Date: 20120825
  Serious: Yes (Other)
  Sender: FDA-Public Use
  Company Number: US-ELI_LILLY_AND_COMPANY-US201203008878

PATIENT
  Age: 67 Year
  Sex: Female

DRUGS (2)
  1. CYMBALTA [Suspect]
     Dosage: 30 MG, QD
     Dates: start: 20110901
  2. CYMBALTA [Suspect]
     Dosage: 60 MG, QD

REACTIONS (3)
  - RENAL FAILURE ACUTE [None]
  - DIARRHOEA [None]
  - HYPONATRAEMIA [None]
